FAERS Safety Report 5894190-1 (Version None)
Quarter: 2008Q3

REPORT INFORMATION
  Report Type: 
  Country: None (occurrence: None)
  Receive Date: 20080922
  Receipt Date: 20080911
  Transmission Date: 20090109
  Serious: Yes (Other)
  Sender: FDA-Public Use
  Company Number: 2008AL010179

PATIENT
  Age: 84 Year
  Sex: Female
  Weight: 57.6068 kg

DRUGS (1)
  1. DIGOXIN [Suspect]
     Indication: ATRIAL FIBRILLATION
     Dosage: DAILY, PO, SEVERAL MONTHS
     Route: 048

REACTIONS (13)
  - BREATH SOUNDS ABNORMAL [None]
  - DYSPHAGIA [None]
  - FALL [None]
  - GASTRITIS [None]
  - GASTROINTESTINAL DISORDER [None]
  - GRIP STRENGTH DECREASED [None]
  - HEADACHE [None]
  - MONARTHRITIS [None]
  - NAUSEA [None]
  - PAIN IN EXTREMITY [None]
  - PHARMACEUTICAL PRODUCT COMPLAINT [None]
  - THERAPEUTIC AGENT TOXICITY [None]
  - WEIGHT DECREASED [None]
